FAERS Safety Report 10210485 (Version 1)
Quarter: 2014Q2

REPORT INFORMATION
  Report Type: Spontaneous
  Country: US (occurrence: US)
  Receive Date: 20140602
  Receipt Date: 20140602
  Transmission Date: 20141212
  Serious: Yes (Hospitalization, Other)
  Sender: FDA-Public Use
  Company Number: US-ACTAVIS-2014-11734

PATIENT
  Age: 50 Year
  Sex: Female
  Weight: 74 kg

DRUGS (5)
  1. CLOPIDOGREL BISULFATE (ATLLC) [Suspect]
     Indication: PROPHYLAXIS
     Dosage: 300 MG, UNK; LOADING DOSE
     Route: 065
  2. CLOPIDOGREL BISULFATE (ATLLC) [Suspect]
     Dosage: 75 MG, DAILY
     Route: 065
  3. ACETYLSALICYLIC ACID (UNKNOWN) [Suspect]
     Indication: PRODUCT USED FOR UNKNOWN INDICATION
     Dosage: 325 MG, DAILY
     Route: 065
  4. PRASUGREL [Suspect]
     Indication: PROPHYLAXIS
     Dosage: 60 MG, UNK; LOADING DOSE
     Route: 065
  5. PRASUGREL [Suspect]
     Dosage: 5 MG, DAILY; MAINTENANCE DOSE
     Route: 065

REACTIONS (5)
  - Subarachnoid haemorrhage [Unknown]
  - Drug resistance [Not Recovered/Not Resolved]
  - Artery dissection [None]
  - Procedural complication [None]
  - Carotid artery thrombosis [None]
